FAERS Safety Report 8417577-1 (Version None)
Quarter: 2012Q2

REPORT INFORMATION
  Report Type: 
  Country: None (occurrence: None)
  Receive Date: 20120606
  Receipt Date: 20120531
  Transmission Date: 20120825
  Serious: Yes (Other)
  Sender: FDA-Public Use
  Company Number: GB-B.I. PHARMACEUTICALS,INC./RIDGEFIELD-2012-EU-02958GD

PATIENT
  Age: 68 Year
  Sex: Male

DRUGS (4)
  1. DIPYRIDAMOLE [Suspect]
     Indication: ANTIPLATELET THERAPY
  2. OMEPRAZOLE [Suspect]
     Indication: DYSPEPSIA
     Dosage: 40 MG
  3. RANITIDINE [Suspect]
     Indication: DYSPEPSIA
     Dosage: 300 MG
  4. ASPIRIN [Suspect]
     Indication: ANTIPLATELET THERAPY

REACTIONS (6)
  - GASTROOESOPHAGEAL REFLUX DISEASE [None]
  - DYSPEPSIA [None]
  - DIARRHOEA [None]
  - VOMITING [None]
  - HAEMATEMESIS [None]
  - MELAENA [None]
